FAERS Safety Report 12952972 (Version 1)
Quarter: 2016Q4

REPORT INFORMATION
  Report Type: Spontaneous
  Country: UA (occurrence: UA)
  Receive Date: 20161117
  Receipt Date: 20161117
  Transmission Date: 20170207
  Serious: Yes (Other)
  Sender: FDA-Public Use
  Company Number: UA-TEVA-710346ISR

PATIENT
  Sex: Female

DRUGS (1)
  1. MODELL TREND [Suspect]
     Active Substance: DROSPIRENONE\ETHINYL ESTRADIOL
     Route: 048
     Dates: start: 20161020, end: 20161103

REACTIONS (11)
  - Abdominal distension [Recovering/Resolving]
  - Rash [Recovering/Resolving]
  - Back pain [Recovering/Resolving]
  - Alopecia [Recovering/Resolving]
  - Weight increased [Recovering/Resolving]
  - Chest pain [Recovering/Resolving]
  - Arrhythmia [Recovering/Resolving]
  - Nausea [Recovering/Resolving]
  - Irritability [Recovering/Resolving]
  - Breast enlargement [Recovering/Resolving]
  - Dyspnoea [Recovering/Resolving]

NARRATIVE: CASE EVENT DATE: 20161020
